FAERS Safety Report 7469274-7 (Version None)
Quarter: 2011Q2

REPORT INFORMATION
  Report Type: 
  Country: None (occurrence: None)
  Receive Date: 20110429
  Receipt Date: 20110427
  Transmission Date: 20111010
  Serious: Yes (Other)
  Sender: FDA-Public Use
  Company Number: SP03648

PATIENT
  Age: 68 Year
  Sex: Female

DRUGS (3)
  1. XIFAXAN [Suspect]
     Indication: DIARRHOEA
     Dosage: 200 MG (200 MG, 1 IN 1 D), ORAL
     Route: 048
     Dates: start: 20110407, end: 20110408
  2. EUTIROX [Concomitant]
  3. ACTONEL [Concomitant]

REACTIONS (1)
  - PALPITATIONS [None]
